FAERS Safety Report 7097510-8 (Version None)
Quarter: 2010Q4

REPORT INFORMATION
  Report Type: 
  Country: None (occurrence: None)
  Receive Date: 20101111
  Receipt Date: 20101105
  Transmission Date: 20110411
  Serious: Yes (Life-Threatening, Other)
  Sender: FDA-Public Use
  Company Number: PHHY2010NL53640

PATIENT
  Sex: Male

DRUGS (15)
  1. ZOMETA [Suspect]
     Dosage: 4 MG/5 ML
     Route: 042
     Dates: start: 20100615
  2. ZOMETA [Suspect]
     Dosage: 4 MG/5 ML
     Dates: start: 20100713
  3. ZOMETA [Suspect]
     Dosage: 4 MG/5 ML
     Dates: start: 20100813
  4. ZOMETA [Suspect]
     Dosage: 4 MG/5ML
     Dates: start: 20100907
  5. ZOMETA [Suspect]
     Dosage: 4 MG/5ML
     Dates: start: 20101105
  6. TRAMADOL HCL [Concomitant]
     Dosage: 25 MG, 3 TIMES
  7. PRAEP [Concomitant]
     Dosage: 10 ML, UNK
  8. LUCRIN [Concomitant]
     Dosage: 22.5 MG, 3 MONTHS
  9. PARACETAMOL [Concomitant]
     Dosage: 500 MG, UNK
  10. MARCUMAR [Concomitant]
     Dosage: 1 MG, UNK
  11. LIPITOR [Concomitant]
     Dosage: 40 MG, UNK
  12. DIOVAN [Concomitant]
     Dosage: 80 MG, UNK
  13. DIOVAN [Concomitant]
     Dosage: 80 MG
  14. PANADOL [Concomitant]
     Dosage: UNK
  15. MORPHINE [Concomitant]
     Dosage: UNK

REACTIONS (14)
  - BACK PAIN [None]
  - FATIGUE [None]
  - FEELING ABNORMAL [None]
  - GAIT DISTURBANCE [None]
  - GENERAL PHYSICAL HEALTH DETERIORATION [None]
  - INSOMNIA [None]
  - MALAISE [None]
  - MIOSIS [None]
  - PAIN IN EXTREMITY [None]
  - PALLOR [None]
  - PARAESTHESIA [None]
  - SOMNOLENCE [None]
  - TERMINAL STATE [None]
  - WHITE BLOOD CELL COUNT DECREASED [None]
